FAERS Safety Report 10241076 (Version 2)
Quarter: 2014Q2

REPORT INFORMATION
  Report Type: Report from Study
  Country: AR (occurrence: AR)
  Receive Date: 20140617
  Receipt Date: 20140617
  Transmission Date: 20141212
  Serious: Yes (Hospitalization)
  Sender: FDA-Public Use
  Company Number: AR-US-EMD SERONO, INC.-7270340

PATIENT
  Age: 12 Year
  Sex: Female

DRUGS (2)
  1. SAIZEN [Suspect]
     Indication: TURNER^S SYNDROME
     Dates: start: 20050726, end: 20131216
  2. SAIZEN [Suspect]
     Dates: start: 20131216, end: 20140215

REACTIONS (4)
  - Joint effusion [Recovered/Resolved]
  - Infection [Recovered/Resolved]
  - Inflammation [Recovered/Resolved]
  - Application site pain [Not Recovered/Not Resolved]
